FAERS Safety Report 23061391 (Version 1)
Quarter: 2023Q4

REPORT INFORMATION
  Report Type: Report from Study
  Country: US (occurrence: US)
  Receive Date: 20231013
  Receipt Date: 20231013
  Transmission Date: 20240110
  Serious: Yes (Hospitalization, Other)
  Sender: FDA-Public Use
  Company Number: US-BRISTOL-MYERS SQUIBB COMPANY-2023-144359

PATIENT
  Age: 76 Year
  Sex: Female

DRUGS (2)
  1. NIVOLUMAB [Suspect]
     Active Substance: NIVOLUMAB
     Indication: Endometrial cancer
     Route: 042
     Dates: start: 20190806
  2. NIVOLUMAB [Suspect]
     Active Substance: NIVOLUMAB
     Dosage: C2D1
     Route: 042
     Dates: start: 20190806

REACTIONS (3)
  - Myocarditis [Recovered/Resolved]
  - Atrioventricular block complete [Recovered/Resolved]
  - Ocular myasthenia [Unknown]

NARRATIVE: CASE EVENT DATE: 20190903
